FAERS Safety Report 8758333 (Version 3)
Quarter: 2012Q4

REPORT INFORMATION
  Report Type: 
  Country: BR (occurrence: BR)
  Receive Date: 20120829
  Receipt Date: 20121005
  Transmission Date: 20130627
  Serious: Yes (Other)
  Sender: FDA-Public Use
  Company Number: BR-AMGEN-BRASP2012052090

PATIENT
  Age: 57 Year
  Sex: Male
  Weight: 108 kg

DRUGS (5)
  1. ENBREL [Suspect]
     Indication: PSORIATIC ARTHROPATHY
     Dosage: 25 mg, 2x/week
     Route: 058
     Dates: start: 200711
  2. CAPTOPRIL [Concomitant]
     Dosage: 50 mg (two tablets of 25mg), 3x/day
  3. CARVEDILOL [Concomitant]
     Dosage: 6.25 mg, 2x/day
  4. DILTIAZEM [Concomitant]
     Indication: BLOOD PRESSURE
     Dosage: 150 mg (3 tablets of strength 50 mg), 3x/day
  5. MAREVAN [Concomitant]
     Dosage: UNK

REACTIONS (5)
  - Vomiting [Not Recovered/Not Resolved]
  - Aphagia [Not Recovered/Not Resolved]
  - Diarrhoea [Not Recovered/Not Resolved]
  - Asthenia [Not Recovered/Not Resolved]
  - Nasopharyngitis [Recovered/Resolved]
